FAERS Safety Report 18241311 (Version 1)
Quarter: 2020Q3

REPORT INFORMATION
  Report Type: Spontaneous
  Country: US (occurrence: US)
  Receive Date: 20200905
  Receipt Date: 20200905
  Transmission Date: 20201103
  Serious: No
  Sender: FDA-Public Use
  Company Number: None

PATIENT
  Age: 60 Year
  Sex: Female

DRUGS (1)
  1. HUMIRA [Suspect]
     Active Substance: ADALIMUMAB
     Indication: PSORIASIS
     Route: 058
     Dates: start: 20200814

REACTIONS (6)
  - Incorrect dose administered [None]
  - Pruritus [None]
  - Pain [None]
  - Therapy non-responder [None]
  - Skin irritation [None]
  - Product prescribing error [None]

NARRATIVE: CASE EVENT DATE: 20200814
